FAERS Safety Report 4537157-8 (Version None)
Quarter: 2004Q4

REPORT INFORMATION
  Report Type: 
  Country: None (occurrence: None)
  Receive Date: 20041223
  Receipt Date: 20041214
  Transmission Date: 20050328
  Serious: Yes (Other)
  Sender: FDA-Public Use
  Company Number: PHEH2004US13294

PATIENT
  Age: 29 Year
  Sex: Female

DRUGS (4)
  1. ZELNORM [Suspect]
     Indication: IRRITABLE BOWEL SYNDROME
     Dosage: 6 MG, BID
     Route: 048
     Dates: start: 20040420, end: 20040928
  2. WELLBUTRIN [Concomitant]
     Indication: DEPRESSION
     Dates: start: 19970101
  3. ZONEGRAN [Concomitant]
     Dates: start: 20030101
  4. CLONAZEPAM [Concomitant]

REACTIONS (2)
  - DEPRESSION [None]
  - SUICIDAL IDEATION [None]
